FAERS Safety Report 16736524 (Version 1)
Quarter: 2019Q3

REPORT INFORMATION
  Report Type: Spontaneous
  Country: US (occurrence: US)
  Receive Date: 20190823
  Receipt Date: 20190823
  Transmission Date: 20191005
  Serious: No
  Sender: FDA-Public Use
  Company Number: US-ELI_LILLY_AND_COMPANY-US201908002667

PATIENT
  Sex: Male

DRUGS (1)
  1. HUMATROPE [Suspect]
     Active Substance: SOMATROPIN
     Indication: GROWTH HORMONE DEFICIENCY
     Dosage: 1.25 MG, UNKNOWN
     Route: 058
     Dates: start: 20190726

REACTIONS (3)
  - Injection site discomfort [Recovered/Resolved]
  - Injection site pain [Recovering/Resolving]
  - Product administered at inappropriate site [Unknown]
